FAERS Safety Report 10170789 (Version 1)
Quarter: 2014Q2

REPORT INFORMATION
  Report Type: Spontaneous
  Country: EC (occurrence: EC)
  Receive Date: 20140514
  Receipt Date: 20140514
  Transmission Date: 20141212
  Serious: Yes (Life-Threatening, Hospitalization, Other)
  Sender: FDA-Public Use
  Company Number: EC-PFIZER INC-2014129235

PATIENT
  Age: 78 Year
  Sex: Male

DRUGS (1)
  1. EPAMIN [Suspect]
     Dosage: 100 MG, UNK
     Route: 048
     Dates: start: 2008

REACTIONS (5)
  - Cardiac failure [Unknown]
  - Convulsion [Unknown]
  - Lung disorder [Unknown]
  - Anaemia [Unknown]
  - Platelet count decreased [Unknown]
